FAERS Safety Report 19467725 (Version 1)
Quarter: 2021Q2

REPORT INFORMATION
  Report Type: Spontaneous
  Country: US (occurrence: US)
  Receive Date: 20210628
  Receipt Date: 20210628
  Transmission Date: 20210717
  Serious: Yes (Other)
  Sender: FDA-Public Use
  Company Number: None

PATIENT
  Age: 71 Year
  Sex: Female
  Weight: 87.75 kg

DRUGS (5)
  1. AMLODIPINE [Concomitant]
     Active Substance: AMLODIPINE BESYLATE
  2. TYLENOL OR ALEVE [Concomitant]
  3. LOSARTAN. [Suspect]
     Active Substance: LOSARTAN
     Indication: HYPERTENSION
     Dosage: ?          OTHER STRENGTH:1;QUANTITY:1 TABLET(S);?
     Route: 048
     Dates: start: 20180715, end: 20210315
  4. ZYRTEC [Concomitant]
     Active Substance: CETIRIZINE HYDROCHLORIDE
  5. ALLEGRA [Concomitant]
     Active Substance: FEXOFENADINE HYDROCHLORIDE

REACTIONS (6)
  - Muscle disorder [None]
  - Myositis [None]
  - Food allergy [None]
  - Eczema [None]
  - Ankle fracture [None]
  - Rash [None]

NARRATIVE: CASE EVENT DATE: 20190628
